FAERS Safety Report 24535359 (Version 1)
Quarter: 2024Q4

REPORT INFORMATION
  Report Type: Spontaneous
  Country: CA (occurrence: CA)
  Receive Date: 20241022
  Receipt Date: 20241022
  Transmission Date: 20250114
  Serious: Yes (Hospitalization)
  Sender: TEVA
  Company Number: CA-TEVA-VS-3254649

PATIENT
  Age: 82 Year
  Sex: Female

DRUGS (2)
  1. ROSUVASTATIN [Suspect]
     Active Substance: ROSUVASTATIN
     Indication: Dyslipidaemia
     Route: 048
  2. BRILINTA [Concomitant]
     Active Substance: TICAGRELOR
     Indication: Product used for unknown indication
     Route: 065

REACTIONS (9)
  - Chest pain [Recovering/Resolving]
  - Muscular weakness [Recovering/Resolving]
  - Drug interaction [Recovering/Resolving]
  - Blood creatine phosphokinase increased [Recovering/Resolving]
  - Liver function test increased [Recovering/Resolving]
  - Exercise tolerance decreased [Recovering/Resolving]
  - Dyspnoea [Recovering/Resolving]
  - Myoglobin blood increased [Recovering/Resolving]
  - Blood creatinine increased [Recovering/Resolving]
